FAERS Safety Report 20808048 (Version 1)
Quarter: 2022Q2

REPORT INFORMATION
  Report Type: Spontaneous
  Country: US (occurrence: None)
  Receive Date: 20220509
  Receipt Date: 20220509
  Transmission Date: 20220721
  Serious: No
  Sender: FDA-Public Use
  Company Number: None

PATIENT
  Age: 26 Year
  Sex: Female

DRUGS (1)
  1. HUMIRA [Suspect]
     Active Substance: ADALIMUMAB
     Indication: Hidradenitis
     Dosage: FREQUENCY : DAILY;?
     Route: 058
     Dates: start: 20220418

REACTIONS (4)
  - Drug ineffective [None]
  - Nausea [None]
  - Headache [None]
  - Burning sensation [None]

NARRATIVE: CASE EVENT DATE: 20220501
